FAERS Safety Report 4537439-X (Version None)
Quarter: 2004Q4

REPORT INFORMATION
  Report Type: 
  Country: None (occurrence: None)
  Receive Date: 20041223
  Receipt Date: 20041013
  Transmission Date: 20050328
  Serious: Yes (Hospitalization)
  Sender: FDA-Public Use
  Company Number: DE-MERCK-0410DEU00462

PATIENT
  Sex: Female

DRUGS (5)
  1. VIOXX [Suspect]
     Indication: POST PROCEDURAL PAIN
     Route: 048
     Dates: start: 20000322, end: 20000101
  2. VIOXX [Suspect]
     Route: 048
     Dates: start: 20010918, end: 20011008
  3. VIOXX [Suspect]
     Route: 048
     Dates: start: 20011127, end: 20020112
  4. VIOXX [Suspect]
     Route: 048
     Dates: start: 20020813, end: 20020915
  5. VIOXX [Suspect]
     Route: 048
     Dates: end: 20030101

REACTIONS (5)
  - BLOOD PRESSURE FLUCTUATION [None]
  - CARDIOVASCULAR DISORDER [None]
  - CHEST PAIN [None]
  - TACHYCARDIA [None]
  - THROMBOSIS [None]
